FAERS Safety Report 4866746-6 (Version None)
Quarter: 2005Q4

REPORT INFORMATION
  Report Type: 
  Country: None (occurrence: None)
  Receive Date: 20051221
  Receipt Date: 20051209
  Transmission Date: 20060501
  Serious: Yes (Hospitalization)
  Sender: FDA-Public Use
  Company Number: 2004064623

PATIENT
  Age: 57 Year
  Sex: Male
  Weight: 75 kg

DRUGS (1)
  1. TAHOR (ATORVASTATIN) [Suspect]
     Indication: ILL-DEFINED DISORDER
     Dosage: 10 MG (1 IN 1 D), ORAL
     Route: 048
     Dates: start: 20000106, end: 20040901

REACTIONS (2)
  - FALL [None]
  - TENDON RUPTURE [None]
